FAERS Safety Report 4803399-7 (Version None)
Quarter: 2005Q4

REPORT INFORMATION
  Report Type: 
  Country: None (occurrence: None)
  Receive Date: 20051013
  Receipt Date: 20050926
  Transmission Date: 20060501
  Serious: Yes (Other)
  Sender: FDA-Public Use
  Company Number: USA0509109167

PATIENT
  Age: 62 Year
  Sex: Female

DRUGS (4)
  1. CYMBALTA [Suspect]
     Indication: MIGRAINE
     Dosage: 60 MG DAY
     Dates: start: 20050101
  2. SYNTHROID (LEVOTHYROXIN SODIUM) [Concomitant]
  3. KLONOPIN [Concomitant]
  4. AMIODARONE HCL [Concomitant]

REACTIONS (7)
  - ARRHYTHMIA [None]
  - ASTHENIA [None]
  - FATIGUE [None]
  - HEART RATE DECREASED [None]
  - INSOMNIA [None]
  - PALPITATIONS [None]
  - SUPRAVENTRICULAR EXTRASYSTOLES [None]
